FAERS Safety Report 5523171-2 (Version None)
Quarter: 2007Q4

REPORT INFORMATION
  Report Type: 
  Country: None (occurrence: None)
  Receive Date: 20071116
  Receipt Date: 20071105
  Transmission Date: 20080405
  Serious: No
  Sender: FDA-Public Use
  Company Number: 020317

PATIENT
  Age: 24 Year
  Sex: Female

DRUGS (1)
  1. APRI(DESOGESTREL, ETHINYLESTRADIOL) TABLET, 0.15/0.03MG [Suspect]
     Indication: ORAL CONTRACEPTION
     Dosage: 1 TABLET, QD, ORAL
     Route: 048
     Dates: start: 20070501

REACTIONS (1)
  - DERMATITIS ALLERGIC [None]
